FAERS Safety Report 10898557 (Version 1)
Quarter: 2015Q1

REPORT INFORMATION
  Report Type: Spontaneous
  Country: US (occurrence: None)
  Receive Date: 20150303
  Receipt Date: 20150303
  Transmission Date: 20150721
  Serious: Yes (Hospitalization)
  Sender: FDA-Public Use
  Company Number: None

PATIENT
  Age: 82 Year
  Sex: Male
  Weight: 85 kg

DRUGS (1)
  1. OXCARBAZEPINE. [Suspect]
     Active Substance: OXCARBAZEPINE
     Indication: SEIZURE
     Route: 048
     Dates: start: 20080804, end: 20141219

REACTIONS (4)
  - Dizziness [None]
  - Acute myocardial infarction [None]
  - Fall [None]
  - Hyponatraemia [None]

NARRATIVE: CASE EVENT DATE: 20141219
